FAERS Safety Report 8957382 (Version 2)
Quarter: 2012Q4

REPORT INFORMATION
  Report Type: 
  Country: US (occurrence: US)
  Receive Date: 20121211
  Receipt Date: 20121213
  Transmission Date: 20130627
  Serious: Yes (Other)
  Sender: FDA-Public Use
  Company Number: US-SANOFI-AVENTIS-2012SA090241

PATIENT
  Age: 59 Year
  Sex: Female

DRUGS (3)
  1. LANTUS [Suspect]
     Indication: TYPE 1 DIABETES MELLITUS
     Dosage: Dose:20 unit(s)
     Route: 058
     Dates: end: 2012
  2. LANTUS [Suspect]
     Indication: TYPE 1 DIABETES MELLITUS
     Dosage: Dose:5 unit(s)
     Route: 058
     Dates: start: 201212
  3. HUMALOG [Suspect]
     Dosage: SLIDING SCALE
     Route: 065

REACTIONS (5)
  - Road traffic accident [Recovering/Resolving]
  - Back pain [Recovering/Resolving]
  - Joint injury [Recovering/Resolving]
  - Hypoglycaemic unconsciousness [Recovered/Resolved]
  - Blood glucose increased [Unknown]
